FAERS Safety Report 7565943-9 (Version None)
Quarter: 2011Q2

REPORT INFORMATION
  Report Type: 
  Country: None (occurrence: None)
  Receive Date: 20110623
  Receipt Date: 20110610
  Transmission Date: 20111010
  Serious: Yes (Other)
  Sender: FDA-Public Use
  Company Number: US-ELI_LILLY_AND_COMPANY-US201104000476

PATIENT
  Sex: Female

DRUGS (2)
  1. FORTEO [Suspect]
     Dosage: 20 UG, QD
  2. FORTEO [Suspect]
     Indication: OSTEOPOROSIS
     Dosage: 20 UG, QD
     Route: 065
     Dates: start: 20110316

REACTIONS (9)
  - CARDIAC PACEMAKER REPLACEMENT [None]
  - INJECTION SITE HAEMORRHAGE [None]
  - ARTHRITIS [None]
  - FATIGUE [None]
  - PAIN IN EXTREMITY [None]
  - SKIN DISORDER [None]
  - ASTHENIA [None]
  - DIZZINESS [None]
  - CONSTIPATION [None]
